FAERS Safety Report 8407446-5 (Version None)
Quarter: 2012Q2

REPORT INFORMATION
  Report Type: 
  Country: None (occurrence: None)
  Receive Date: 20120604
  Receipt Date: 20120601
  Transmission Date: 20120825
  Serious: Yes (Hospitalization)
  Sender: FDA-Public Use
  Company Number: GB-EISAI INC-E2090-02143-SPO-GB

PATIENT
  Age: 10 Year
  Sex: Male
  Weight: 16.6 kg

DRUGS (4)
  1. HYOSCINE HYDROBROMIDE [Concomitant]
     Route: 061
  2. KEPPRA [Concomitant]
     Indication: EPILEPSY
     Route: 048
     Dates: start: 20090901
  3. MOVIPREP [Concomitant]
     Indication: CONSTIPATION
     Route: 048
     Dates: start: 20100101
  4. ZONISAMIDE [Suspect]
     Indication: EPILEPSY
     Route: 048
     Dates: start: 20111101, end: 20120430

REACTIONS (5)
  - DEPRESSED LEVEL OF CONSCIOUSNESS [None]
  - SLOW RESPONSE TO STIMULI [None]
  - WEIGHT DECREASED [None]
  - FLUID INTAKE REDUCED [None]
  - DECREASED APPETITE [None]
